FAERS Safety Report 9296745 (Version 3)
Quarter: 2013Q2

REPORT INFORMATION
  Report Type: Spontaneous
  Country: US (occurrence: None)
  Receive Date: 20130515
  Receipt Date: 20130619
  Transmission Date: 20140414
  Serious: Yes (Other)
  Sender: FDA-Public Use
  Company Number: 2013P1005361

PATIENT
  Age: 14 Year
  Sex: Male

DRUGS (5)
  1. OXTELLAR XR [Suspect]
     Indication: CONVULSION
     Route: 048
     Dates: start: 20130425, end: 20130430
  2. TRAZODONE [Concomitant]
  3. VYVANSE [Concomitant]
  4. PROZAC [Concomitant]
  5. LEVOTHYROXINE SODIUM [Concomitant]

REACTIONS (3)
  - Nausea [None]
  - Eructation [None]
  - Haematemesis [None]
